FAERS Safety Report 23332823 (Version 1)
Quarter: 2023Q4

REPORT INFORMATION
  Report Type: Spontaneous
  Country: US (occurrence: US)
  Receive Date: 20231222
  Receipt Date: 20231222
  Transmission Date: 20240110
  Serious: No
  Sender: FDA-Public Use
  Company Number: US-CTI BIOPHARMA-2023US04094

PATIENT

DRUGS (5)
  1. VONJO [Suspect]
     Active Substance: PACRITINIB
     Indication: Myelofibrosis
     Dosage: 200 MG, BID
     Route: 048
     Dates: start: 20230723
  2. GEMTESA [Concomitant]
     Active Substance: VIBEGRON
  3. CARVEDILOL [Concomitant]
     Active Substance: CARVEDILOL
  4. CELECOXIB [Concomitant]
     Active Substance: CELECOXIB
  5. EXCEDRIN MIGRAINE [Concomitant]
     Active Substance: ACETAMINOPHEN\ASPIRIN\CAFFEINE

REACTIONS (1)
  - Hypertonic bladder [Unknown]
